FAERS Safety Report 20038349 (Version 1)
Quarter: 2021Q4

REPORT INFORMATION
  Report Type: Spontaneous
  Country: US (occurrence: US)
  Receive Date: 20211105
  Receipt Date: 20211105
  Transmission Date: 20220303
  Serious: No
  Sender: FDA-Public Use
  Company Number: US-EYEVANCE PHARMACEUTICALS-2020EYE00252

PATIENT
  Age: 52 Year
  Sex: Female
  Weight: 68.027 kg

DRUGS (6)
  1. NATACYN [Suspect]
     Active Substance: NATAMYCIN
     Indication: Eye infection
     Dosage: 1 DROP, ONCE IN LEFT EYE
     Route: 047
     Dates: start: 20201020, end: 202010
  2. TOBRAMYCIN [Suspect]
     Active Substance: TOBRAMYCIN
     Indication: Product used for unknown indication
  3. UNSPECIFIED INGREDIENT [Concomitant]
     Active Substance: UNSPECIFIED INGREDIENT
  4. UNSPECIFIED INGREDIENT [Concomitant]
     Active Substance: UNSPECIFIED INGREDIENT
  5. VITAMINS [Concomitant]
     Active Substance: VITAMINS
  6. VANCOMYCIN [Concomitant]
     Active Substance: VANCOMYCIN

REACTIONS (6)
  - Product dose omission issue [Recovered/Resolved]
  - Liquid product physical issue [Recovered/Resolved]
  - Off label use [Recovered/Resolved]
  - Product residue present [Unknown]
  - Eye pain [Recovered/Resolved]
  - Foreign body sensation in eyes [Unknown]

NARRATIVE: CASE EVENT DATE: 20201001
